FAERS Safety Report 8896490 (Version 1)
Quarter: 2012Q4

REPORT INFORMATION
  Report Type: Spontaneous
  Country: US (occurrence: None)
  Receive Date: 20121107
  Receipt Date: 20121107
  Transmission Date: 20130627
  Serious: No
  Sender: FDA-Public Use
  Company Number: None

PATIENT
  Age: 39 Year
  Sex: Male

DRUGS (2)
  1. RIBAVIRIN [Suspect]
     Route: 048
     Dates: start: 20120906, end: 20121030
  2. PEGASYS 180MCG/0.5ML GENENTECH [Suspect]
     Dosage: 180mcg QW SQ
     Route: 058
     Dates: start: 20120906, end: 20121030

REACTIONS (4)
  - Faeces discoloured [None]
  - Abdominal pain upper [None]
  - Decreased appetite [None]
  - Vomiting [None]
